FAERS Safety Report 6919128-7 (Version None)
Quarter: 2010Q3

REPORT INFORMATION
  Report Type: 
  Country: None (occurrence: None)
  Receive Date: 20100811
  Receipt Date: 20100803
  Transmission Date: 20110219
  Serious: Yes (Other)
  Sender: FDA-Public Use
  Company Number: US-SHIRE-ALL1-2010-04139

PATIENT

DRUGS (3)
  1. FOSRENOL [Suspect]
     Indication: HYPERPHOSPHATAEMIA
     Dosage: 1000 MG, OTHER (1000MG TOW TABLETS DAILY)
     Route: 048
  2. SENSIPAR [Concomitant]
     Indication: RENAL FAILURE
     Dosage: UNK MG, 1X/DAY:QD
     Route: 048
  3. ASPIRIN [Concomitant]
     Indication: PROPHYLAXIS
     Dosage: 81 MG, 1X/DAY:QD
     Route: 048

REACTIONS (2)
  - BLOOD COUNT ABNORMAL [None]
  - HAEMATOCHEZIA [None]
